FAERS Safety Report 7223216-8 (Version None)
Quarter: 2011Q1

REPORT INFORMATION
  Report Type: 
  Country: None (occurrence: None)
  Receive Date: 20110112
  Receipt Date: 20100308
  Transmission Date: 20110831
  Serious: No
  Sender: FDA-Public Use
  Company Number: US-ALLERGAN-1003065US

PATIENT
  Age: 35 Year
  Sex: Female

DRUGS (1)
  1. RESTASIS [Suspect]
     Indication: DRY EYE
     Dosage: 1 GTT, BID

REACTIONS (9)
  - SINUS DISORDER [None]
  - FEELING JITTERY [None]
  - PREMENSTRUAL SYNDROME [None]
  - EYE IRRITATION [None]
  - PRODUCT TASTE ABNORMAL [None]
  - SWELLING FACE [None]
  - MOOD ALTERED [None]
  - IRRITABILITY [None]
  - OROPHARYNGEAL PAIN [None]
